FAERS Safety Report 19190751 (Version 3)
Quarter: 2021Q2

REPORT INFORMATION
  Report Type: Spontaneous
  Country: JP (occurrence: JP)
  Receive Date: 20210428
  Receipt Date: 20210524
  Transmission Date: 20210717
  Serious: Yes (Death)
  Sender: FDA-Public Use
  Company Number: JP-JNJFOC-20210452103

PATIENT
  Age: 51 Year
  Sex: Female
  Weight: 76 kg

DRUGS (11)
  1. RISPERIDONE. [Concomitant]
     Active Substance: RISPERIDONE
     Dosage: DOSE UNKNOWN
     Route: 048
  2. XEPLION [Suspect]
     Active Substance: PALIPERIDONE PALMITATE
  3. PYRETHIA [Concomitant]
     Active Substance: PROMETHAZINE HYDROCHLORIDE
     Dosage: DOSE UNKNOWN
     Route: 048
  4. CARBAMAZEPINE. [Concomitant]
     Active Substance: CARBAMAZEPINE
     Dosage: DOSE UNKNOWN
     Route: 048
  5. HIRNAMIN [LEVOMEPROMAZINE] [Concomitant]
     Active Substance: LEVOMEPROMAZINE
  6. BELSOMRA [Concomitant]
     Active Substance: SUVOREXANT
     Route: 048
  7. RISPERIDONE. [Concomitant]
     Active Substance: RISPERIDONE
     Dosage: DOSE UNKNOWN
     Route: 048
  8. SOLANAX [Concomitant]
     Active Substance: ALPRAZOLAM
     Route: 048
  9. BENZALIN [NITRAZEPAM] [Concomitant]
     Active Substance: NITRAZEPAM
     Dosage: DOSE UNKNOWN
     Route: 048
  10. XEPLION [Suspect]
     Active Substance: PALIPERIDONE PALMITATE
     Indication: SCHIZOPHRENIA
     Route: 030
     Dates: start: 201903, end: 202012
  11. XEPLION [Suspect]
     Active Substance: PALIPERIDONE PALMITATE

REACTIONS (1)
  - Death [Fatal]
